FAERS Safety Report 4798375-7 (Version None)
Quarter: 2005Q4

REPORT INFORMATION
  Report Type: 
  Country: None (occurrence: None)
  Receive Date: 20051011
  Receipt Date: 20050928
  Transmission Date: 20060501
  Serious: Yes (Other)
  Sender: FDA-Public Use
  Company Number: 2005PV000794

PATIENT
  Age: 63 Year
  Sex: Female
  Weight: 99.7913 kg

DRUGS (16)
  1. BYETTA [Suspect]
     Indication: DIABETES MELLITUS NON-INSULIN-DEPENDENT
     Dosage: SEE IMAGE, SC
     Route: 058
     Dates: start: 20050729, end: 20050831
  2. GLIPIZIDE XL ACTOS [Concomitant]
  3. ALLOPURINOL [Concomitant]
  4. ZYRTEC [Concomitant]
  5. ISOSORBIDE MONONITRATE [Concomitant]
  6. ATENOLOL [Concomitant]
  7. FLUOXETINE [Concomitant]
  8. COZAAR [Concomitant]
  9. ZOCOR [Concomitant]
  10. ASPIRIN [Concomitant]
  11. ALLEGRA [Concomitant]
  12. FOLTX [Concomitant]
  13. METFORMIN [Concomitant]
  14. ONE A DAY [Concomitant]
  15. BAKING SODA [Concomitant]
  16. LANTUS [Concomitant]

REACTIONS (11)
  - BLOOD GLUCOSE INCREASED [None]
  - BREAST CANCER FEMALE [None]
  - DYSGEUSIA [None]
  - EARLY SATIETY [None]
  - FEAR [None]
  - FLATULENCE [None]
  - HAIR GROWTH ABNORMAL [None]
  - NAIL DISORDER [None]
  - NAUSEA [None]
  - RASH [None]
  - WEIGHT INCREASED [None]
